FAERS Safety Report 4303653-1 (Version None)
Quarter: 2004Q1

REPORT INFORMATION
  Report Type: 
  Country: None (occurrence: None)
  Receive Date: 20040223
  Receipt Date: 20040210
  Transmission Date: 20041129
  Serious: Yes (Death, Other)
  Sender: FDA-Public Use
  Company Number: 2004005046

PATIENT
  Age: 35 Month
  Sex: Female

DRUGS (3)
  1. ATARAX [Suspect]
     Indication: AGITATION
     Dosage: 10 MG (ONCE), ORAL
     Route: 048
     Dates: start: 20010210, end: 20010210
  2. ATARAX [Suspect]
     Indication: HYPERSENSITIVITY
     Dosage: 10 MG (ONCE), ORAL
     Route: 048
     Dates: start: 20010210, end: 20010210
  3. AUGMENTIN '500' [Concomitant]

REACTIONS (12)
  - BLOOD PRESSURE DECREASED [None]
  - BRADYCARDIA [None]
  - CARDIAC ARREST [None]
  - DEATH OF CHILD [None]
  - DEPRESSED LEVEL OF CONSCIOUSNESS [None]
  - ERYTHEMA MULTIFORME [None]
  - HEART RATE INCREASED [None]
  - LUNG DISORDER [None]
  - LUNG INFECTION [None]
  - MEDICATION ERROR [None]
  - URTICARIA [None]
  - VIRAL MYOCARDITIS [None]
